FAERS Safety Report 6397181-X (Version None)
Quarter: 2009Q4

REPORT INFORMATION
  Report Type: 
  Country: None (occurrence: None)
  Receive Date: 20091007
  Receipt Date: 20090924
  Transmission Date: 20100525
  Serious: Yes (Other)
  Sender: FDA-Public Use
  Company Number: 231228J09USA

PATIENT
  Age: 62 Year
  Sex: Female

DRUGS (2)
  1. REBIF [Suspect]
     Indication: MULTIPLE SCLEROSIS
     Dosage: 44 MCG, 3 IN 1 WEEKS, SUBCUTANEOUS
     Route: 058
     Dates: start: 20040923
  2. CELEBREX [Concomitant]

REACTIONS (3)
  - MUSCLE RUPTURE [None]
  - MUSCULOSKELETAL PAIN [None]
  - ROTATOR CUFF SYNDROME [None]
